FAERS Safety Report 8346760-9 (Version None)
Quarter: 2012Q2

REPORT INFORMATION
  Report Type: 
  Country: None (occurrence: None)
  Receive Date: 20120508
  Receipt Date: 20120508
  Transmission Date: 20120825
  Serious: Yes (Other)
  Sender: FDA-Public Use
  Company Number: None

PATIENT
  Sex: Female
  Weight: 55.3388 kg

DRUGS (2)
  1. RIBAVIRIN [Suspect]
     Indication: HEPATITIS C
     Dosage: 400MG TWICE A DAY ORAL
     Route: 048
     Dates: start: 20120406
  2. PEGASYS [Suspect]
     Indication: HEPATITIS C
     Dosage: 180MCG WEEKLY SUBCUTANEOUS
     Route: 058
     Dates: start: 20120406

REACTIONS (4)
  - DEPRESSION [None]
  - PRURITUS GENERALISED [None]
  - ORAL MUCOSAL BLISTERING [None]
  - ANXIETY [None]
